FAERS Safety Report 18707058 (Version 1)
Quarter: 2021Q1

REPORT INFORMATION
  Report Type: Spontaneous
  Country: US (occurrence: US)
  Receive Date: 20210106
  Receipt Date: 20210106
  Transmission Date: 20210419
  Serious: No
  Sender: FDA-Public Use
  Company Number: None

PATIENT
  Age: 84 Year
  Sex: Male

DRUGS (1)
  1. ASPIRIN/DIPYRIDAMOLE ER [Suspect]
     Active Substance: ASPIRIN\DIPYRIDAMOLE
     Route: 048
     Dates: start: 20201229, end: 20210105

REACTIONS (1)
  - Gait inability [None]

NARRATIVE: CASE EVENT DATE: 20210106
